FAERS Safety Report 10302246 (Version 18)
Quarter: 2017Q4

REPORT INFORMATION
  Report Type: Report from Study
  Country: CA (occurrence: CA)
  Receive Date: 20140714
  Receipt Date: 20171214
  Transmission Date: 20180320
  Serious: Yes (Death, Hospitalization, Disabling, Other)
  Sender: FDA-Public Use
  Company Number: CA-ROCHE-1282549

PATIENT
  Age: 55 Year
  Sex: Female
  Weight: 78.4 kg

DRUGS (16)
  1. AVASTIN [Suspect]
     Active Substance: BEVACIZUMAB
     Route: 042
     Dates: start: 20150429
  2. HYDROMORPHONE [Suspect]
     Active Substance: HYDROMORPHONE
     Indication: PRODUCT USED FOR UNKNOWN INDICATION
     Dosage: 2 TO 3 TABLETS DAILY
     Route: 048
  3. NITROFURANTOIN. [Concomitant]
     Active Substance: NITROFURANTOIN
     Dosage: FOR SEVEN DAYS
     Route: 065
  4. CARBOPLATIN. [Concomitant]
     Active Substance: CARBOPLATIN
  5. PACLITAXEL. [Concomitant]
     Active Substance: PACLITAXEL
  6. TAXOL [Concomitant]
     Active Substance: PACLITAXEL
  7. AMLODIPIN [Suspect]
     Active Substance: AMLODIPINE BESYLATE
     Indication: PRODUCT USED FOR UNKNOWN INDICATION
     Route: 065
  8. MACROBID [Suspect]
     Active Substance: NITROFURANTOIN\NITROFURANTOIN MONOHYDRATE
     Indication: PRODUCT USED FOR UNKNOWN INDICATION
     Route: 065
  9. DECADRON [Concomitant]
     Active Substance: DEXAMETHASONE
     Route: 065
  10. MAGNESIUM OXIDE. [Concomitant]
     Active Substance: MAGNESIUM OXIDE
     Route: 048
  11. MAXERAN [Concomitant]
     Active Substance: METOCLOPRAMIDE HYDROCHLORIDE
     Route: 065
  12. HYDROMORPHONE [Suspect]
     Active Substance: HYDROMORPHONE
     Dosage: 1-2 MG
     Route: 058
  13. RANITIDINE. [Concomitant]
     Active Substance: RANITIDINE
     Dosage: AS NEEDED
     Route: 065
  14. SOLIFENACIN [Concomitant]
     Active Substance: SOLIFENACIN
  15. PANTOPRAZOLE [Concomitant]
     Active Substance: PANTOPRAZOLE
     Route: 065
  16. AVASTIN [Suspect]
     Active Substance: BEVACIZUMAB
     Indication: OVARIAN CANCER
     Route: 042
     Dates: start: 20130619

REACTIONS (27)
  - Renal atrophy [Unknown]
  - Neuropathy peripheral [Unknown]
  - Off label use [Unknown]
  - Blood count abnormal [Unknown]
  - Abdominal pain upper [Recovered/Resolved]
  - Vomiting [Unknown]
  - Blood creatinine increased [Unknown]
  - Oedema peripheral [Recovering/Resolving]
  - Insomnia [Unknown]
  - Single functional kidney [Unknown]
  - Dysuria [Recovered/Resolved]
  - Ill-defined disorder [Unknown]
  - Drug hypersensitivity [Unknown]
  - Sepsis [Fatal]
  - Hypoalbuminaemia [Unknown]
  - Stress [Unknown]
  - Central obesity [Unknown]
  - Abdominal discomfort [Unknown]
  - Blood creatine increased [Not Recovered/Not Resolved]
  - Urinary tract infection [Unknown]
  - Nausea [Recovering/Resolving]
  - Proteinuria [Unknown]
  - Kidney infection [Unknown]
  - Renal failure [Unknown]
  - Intestinal obstruction [Unknown]
  - Blood potassium decreased [Recovered/Resolved]
  - Abdominal pain upper [Recovering/Resolving]

NARRATIVE: CASE EVENT DATE: 20130925
